FAERS Safety Report 6195984-8 (Version None)
Quarter: 2009Q2

REPORT INFORMATION
  Report Type: 
  Country: None (occurrence: None)
  Receive Date: 20090520
  Receipt Date: 20090518
  Transmission Date: 20091009
  Serious: Yes (Death, Hospitalization, Other)
  Sender: FDA-Public Use
  Company Number: PHEH2007US11285

PATIENT
  Sex: Female
  Weight: 69.388 kg

DRUGS (23)
  1. ZOMETA [Suspect]
     Indication: BREAST CANCER
     Dosage: 4 MG, UNK
     Dates: start: 20040101, end: 20060101
  2. ZITHROMAX [Concomitant]
     Dosage: 250 MG, UNK
     Dates: start: 20001101
  3. CELEBREX [Concomitant]
     Dosage: 200 MG, UNK
     Dates: start: 20011001
  4. IBUPROFEN [Concomitant]
     Dosage: 800 MG, UNK
     Dates: start: 20030101
  5. XELODA [Concomitant]
     Dosage: 500 MG, UNK
     Dates: start: 20051201
  6. PENICILLIN VK [Concomitant]
     Dosage: 500 MG, UNK
     Dates: start: 20070801
  7. MEGESTROL ACETATE [Concomitant]
     Dosage: 40 MG/ML, UNK
     Dates: start: 20080401
  8. NYSTATIN [Concomitant]
     Dosage: 100000 U/ML, UNK
     Dates: start: 20080701
  9. AUGMENTIN - SLOW RELEASE [Concomitant]
     Dosage: 1000/62.5
     Dates: start: 20080801
  10. CHEMOTHERAPEUTICS NOS [Concomitant]
  11. DEXAMETHASONE 4MG TAB [Concomitant]
     Dosage: 10 MG, UNK
  12. ZOLOFT [Concomitant]
  13. DILAUDID [Concomitant]
     Dosage: 2MG AS NEEDED EVERY 4 HOURS
     Route: 048
  14. RADIATION [Concomitant]
  15. CYTOXAN [Concomitant]
  16. METHOTREXATE [Concomitant]
  17. FLUOROURACIL [Concomitant]
  18. XELODA [Concomitant]
  19. CARBOPLATIN [Concomitant]
     Dosage: UNK
  20. TAXOL [Concomitant]
  21. IRINOTECAN HCL [Concomitant]
  22. TAXOTERE [Concomitant]
  23. ABRAXANE [Concomitant]

REACTIONS (37)
  - ALANINE AMINOTRANSFERASE INCREASED [None]
  - ANXIETY [None]
  - ASCITES [None]
  - ASPIRATION PLEURAL CAVITY [None]
  - BONE DISORDER [None]
  - BREAST CANCER METASTATIC [None]
  - CHRONIC OBSTRUCTIVE PULMONARY DISEASE [None]
  - CONSTIPATION [None]
  - DEATH [None]
  - DECREASED INTEREST [None]
  - DEEP VEIN THROMBOSIS [None]
  - DEFORMITY [None]
  - DISCOMFORT [None]
  - DIZZINESS [None]
  - DYSPEPSIA [None]
  - EMOTIONAL DISTRESS [None]
  - GAIT DISTURBANCE [None]
  - HEART RATE INCREASED [None]
  - HERPES SIMPLEX [None]
  - HYPOPHAGIA [None]
  - INJURY [None]
  - LIFE EXPECTANCY SHORTENED [None]
  - LIVER DISORDER [None]
  - LOOSE TOOTH [None]
  - LOSS OF CONSCIOUSNESS [None]
  - MALIGNANT PLEURAL EFFUSION [None]
  - METASTASES TO BONE [None]
  - METASTASES TO CENTRAL NERVOUS SYSTEM [None]
  - METASTASES TO LIVER [None]
  - METASTASES TO LUNG [None]
  - METASTATIC NEOPLASM [None]
  - OEDEMA PERIPHERAL [None]
  - OSTEONECROSIS [None]
  - PAIN [None]
  - PLEURECTOMY [None]
  - PYREXIA [None]
  - THROAT IRRITATION [None]
